FAERS Safety Report 23270118 (Version 1)
Quarter: 2023Q4

REPORT INFORMATION
  Report Type: Other
  Country: CN (occurrence: CN)
  Receive Date: 20231207
  Receipt Date: 20231207
  Transmission Date: 20240109
  Serious: Yes (Hospitalization, Disabling, Other)
  Sender: FDA-Public Use
  Company Number: CN-ASTELLAS-2023US036058

PATIENT
  Age: 64 Year
  Sex: Female
  Weight: 47.05 kg

DRUGS (5)
  1. XOSPATA [Suspect]
     Active Substance: GILTERITINIB
     Indication: Acute myeloid leukaemia
     Route: 048
     Dates: start: 20231103, end: 20231107
  2. CYCLOPHOSPHAMIDE [Suspect]
     Active Substance: CYCLOPHOSPHAMIDE
     Indication: Acute myeloid leukaemia
     Dosage: 400 MG, ONCE DAILY, (D2, D5)
     Route: 041
     Dates: start: 20231026, end: 20231026
  3. CYCLOPHOSPHAMIDE [Suspect]
     Active Substance: CYCLOPHOSPHAMIDE
     Route: 041
     Dates: start: 20231029, end: 20231029
  4. CYTARABINE [Suspect]
     Active Substance: CYTARABINE
     Indication: Acute myeloid leukaemia
     Dosage: 0.1 G, ONCE DAILY, (100 MG ONCE DAILY, D1-7)
     Route: 041
     Dates: start: 20231025, end: 20231031
  5. MITOXANTRONE HYDROCHLORIDE [Suspect]
     Active Substance: MITOXANTRONE HYDROCHLORIDE
     Indication: Acute myeloid leukaemia
     Dosage: 10 MG, ONCE DAILY, (D1-3)
     Route: 041
     Dates: start: 20231025, end: 20231027

REACTIONS (5)
  - Myelosuppression [Recovering/Resolving]
  - Gastrointestinal haemorrhage [Recovering/Resolving]
  - Pancytopenia [Unknown]
  - Product preparation issue [Unknown]
  - Off label use [Unknown]

NARRATIVE: CASE EVENT DATE: 20231103
